FAERS Safety Report 4509478-6 (Version None)
Quarter: 2004Q4

REPORT INFORMATION
  Report Type: 
  Country: None (occurrence: None)
  Receive Date: 20041119
  Receipt Date: 20041101
  Transmission Date: 20050328
  Serious: Yes (Hospitalization)
  Sender: FDA-Public Use
  Company Number: US_0410106635

PATIENT
  Age: 75 Year
  Sex: Male

DRUGS (2)
  1. CYMBALTA [Suspect]
     Indication: DEPRESSION
     Dosage: 30 MG DAY
     Dates: start: 20040903
  2. RISPERIDONE [Concomitant]

REACTIONS (3)
  - FEELING ABNORMAL [None]
  - HYPONATRAEMIA [None]
  - POLYDIPSIA [None]
